FAERS Safety Report 5347672-5 (Version None)
Quarter: 2007Q2

REPORT INFORMATION
  Report Type: 
  Country: None (occurrence: None)
  Receive Date: 20070508
  Receipt Date: 20061006
  Transmission Date: 20071010
  Serious: Yes (Hospitalization)
  Sender: FDA-Public Use
  Company Number: 236578K06USA

PATIENT
  Age: 41 Year
  Sex: Female
  Weight: 70.3075 kg

DRUGS (7)
  1. REBIF [Suspect]
     Indication: MULTIPLE SCLEROSIS
     Dosage: 44 MCG, 3 IN 1 WEEKS, SUBCUTANEOUS
     Route: 058
     Dates: start: 20050617, end: 20060901
  2. MOBIC [Concomitant]
  3. PAIN MEDICATION (ALL OTHER THERAPEUTIC PRODUCTS) [Concomitant]
  4. NEXIUM [Concomitant]
  5. MIRAPEX [Concomitant]
  6. SKELAXIN [Concomitant]
  7. STEROIDS (CORTICOSTEROIDS) [Concomitant]

REACTIONS (8)
  - ABASIA [None]
  - DECREASED APPETITE [None]
  - HEMIPARESIS [None]
  - MEMORY IMPAIRMENT [None]
  - MIGRAINE [None]
  - MULTIPLE SCLEROSIS RELAPSE [None]
  - VISUAL DISTURBANCE [None]
  - WEIGHT INCREASED [None]
